FAERS Safety Report 7981291-7 (Version None)
Quarter: 2011Q4

REPORT INFORMATION
  Report Type: 
  Country: None (occurrence: None)
  Receive Date: 20111215
  Receipt Date: 20111208
  Transmission Date: 20120403
  Serious: No
  Sender: FDA-Public Use
  Company Number: US-PFIZER INC-2011300324

PATIENT
  Sex: Female
  Weight: 76.19 kg

DRUGS (11)
  1. CLONAZEPAM [Concomitant]
     Dosage: HALF OF THE 0.5MG IN THE MORNING
  2. COUMADIN [Concomitant]
     Dosage: 4MG FOR FIVE DAYS AND 2 MG FOR TWO DAYS
     Route: 048
  3. AVALIDE [Concomitant]
     Dosage: 150/12.5 MG TABLET
     Route: 048
  4. LIPITOR [Concomitant]
     Dosage: 20 MG, UNK
     Route: 048
  5. EFFEXOR XR [Suspect]
     Indication: ANXIETY
     Dosage: 75 MG, 2X/DAY
     Route: 048
     Dates: end: 20111111
  6. VENLAFAXINE HCL [Suspect]
     Indication: ANXIETY
     Dosage: 75 MG, 3X/DAY
     Route: 048
     Dates: start: 20111111
  7. CLONAZEPAM [Concomitant]
     Indication: ANXIETY
     Dosage: HALF TABLET OF 0.5MG 3 TIMES A DAY AS NEEDED
     Route: 048
  8. SYNTHROID [Concomitant]
     Dosage: 0.112 MG TABLET
     Route: 048
  9. OMEPRAZOLE [Concomitant]
     Dosage: 20 MG, 2X/DAY
     Route: 048
  10. EFFEXOR XR [Suspect]
     Indication: DEPRESSION
     Dosage: 75 MG, 3X/DAY
  11. VENLAFAXINE HCL [Suspect]
     Indication: DEPRESSION

REACTIONS (10)
  - FOOD ALLERGY [None]
  - DEPRESSION [None]
  - DRUG HYPERSENSITIVITY [None]
  - FEELING ABNORMAL [None]
  - DYSGEUSIA [None]
  - HEADACHE [None]
  - ABDOMINAL DISCOMFORT [None]
  - DRUG INEFFECTIVE [None]
  - NAUSEA [None]
  - CRYING [None]
